FAERS Safety Report 11571043 (Version 1)
Quarter: 2015Q3

REPORT INFORMATION
  Report Type: Spontaneous
  Country: MX (occurrence: MX)
  Receive Date: 20150929
  Receipt Date: 20150929
  Transmission Date: 20151125
  Serious: Yes (Hospitalization, Other)
  Sender: FDA-Public Use
  Company Number: MX-JNJFOC-20150921104

PATIENT
  Age: 80 Year
  Sex: Female

DRUGS (1)
  1. RISPERDAL [Suspect]
     Active Substance: RISPERIDONE
     Indication: CEREBROVASCULAR DISORDER
     Dosage: 1ML IN THE MORNING AND 1 ML AT NIGHT.
     Route: 048
     Dates: start: 201305

REACTIONS (7)
  - Tachycardia [Unknown]
  - Sleep disorder [Unknown]
  - Hospitalisation [Unknown]
  - Product use issue [Unknown]
  - Product dropper issue [Unknown]
  - Unevaluable event [Unknown]
  - Incorrect dose administered [Unknown]

NARRATIVE: CASE EVENT DATE: 201507
